FAERS Safety Report 25836024 (Version 1)
Quarter: 2025Q3

REPORT INFORMATION
  Report Type: Spontaneous
  Country: EU (occurrence: EU)
  Receive Date: 20250923
  Receipt Date: 20250923
  Transmission Date: 20251020
  Serious: Yes (Life-Threatening, Hospitalization)
  Sender: MYLAN
  Company Number: None

PATIENT
  Age: 62 Year
  Sex: Female

DRUGS (8)
  1. PREDNISONE [Suspect]
     Active Substance: PREDNISONE
     Indication: Product used for unknown indication
  2. ACETAMINOPHEN [Suspect]
     Active Substance: ACETAMINOPHEN
     Indication: Product used for unknown indication
  3. OXYCODONE [Suspect]
     Active Substance: OXYCODONE
     Indication: Product used for unknown indication
  4. MEKTOVI [Suspect]
     Active Substance: BINIMETINIB
     Indication: Superficial spreading melanoma stage IV
  5. BRAFTOVI [Suspect]
     Active Substance: ENCORAFENIB
     Indication: Superficial spreading melanoma stage IV
  6. POTASSIUM CHLORIDE [Suspect]
     Active Substance: POTASSIUM CHLORIDE
     Indication: Product used for unknown indication
  7. POLYETHYLENE GLYCOLS [Suspect]
     Active Substance: POLYETHYLENE GLYCOLS
     Indication: Product used for unknown indication
  8. AMITRIPTYLINE HYDROCHLORIDE [Suspect]
     Active Substance: AMITRIPTYLINE HYDROCHLORIDE
     Indication: Product used for unknown indication

REACTIONS (2)
  - Colitis [Recovering/Resolving]
  - Ileal stenosis [Recovering/Resolving]

NARRATIVE: CASE EVENT DATE: 20250813
